FAERS Safety Report 7279771-5 (Version None)
Quarter: 2011Q1

REPORT INFORMATION
  Report Type: 
  Country: None (occurrence: None)
  Receive Date: 20110208
  Receipt Date: 20110131
  Transmission Date: 20110831
  Serious: Yes (Other)
  Sender: FDA-Public Use
  Company Number: US-AMGEN-USASP2011005943

PATIENT
  Age: 30 Year
  Sex: Male

DRUGS (1)
  1. ENBREL [Suspect]
     Indication: ANKYLOSING SPONDYLITIS
     Dosage: 50 MG, QWK
     Dates: start: 20100316

REACTIONS (6)
  - INJECTION SITE ERYTHEMA [None]
  - EYE PAIN [None]
  - ASTIGMATISM [None]
  - MIGRAINE [None]
  - HYPOAESTHESIA ORAL [None]
  - INJECTION SITE PRURITUS [None]
